FAERS Safety Report 16040351 (Version 2)
Quarter: 2019Q1

REPORT INFORMATION
  Report Type: Spontaneous
  Country: CN (occurrence: CN)
  Receive Date: 20190306
  Receipt Date: 20190315
  Transmission Date: 20190418
  Serious: Yes (Other)
  Sender: FDA-Public Use
  Company Number: CN-PFIZER INC-2019093173

PATIENT
  Age: 74 Year
  Sex: Male

DRUGS (7)
  1. PALONOSETRON. [Concomitant]
     Active Substance: PALONOSETRON HYDROCHLORIDE
     Dosage: UNK
  2. BEVACIZUMAB. [Concomitant]
     Active Substance: BEVACIZUMAB
  3. CAMPTO [Suspect]
     Active Substance: IRINOTECAN
     Dosage: 300 MG, D1
     Route: 041
     Dates: start: 20190227
  4. CAMPTO [Suspect]
     Active Substance: IRINOTECAN
     Dosage: 300 MG, D1
     Route: 041
     Dates: start: 20190227, end: 20190227
  5. PROMETHAZINE [Concomitant]
     Active Substance: PROMETHAZINE\PROMETHAZINE HYDROCHLORIDE
     Dosage: UNK
     Dates: start: 20190227
  6. AVASTIN [Concomitant]
     Active Substance: BEVACIZUMAB
     Dosage: UNK
     Dates: start: 20190227
  7. ATROPINE. [Concomitant]
     Active Substance: ATROPINE
     Dosage: UNK
     Dates: start: 20190227, end: 20190227

REACTIONS (2)
  - Abdominal discomfort [Unknown]
  - Haematemesis [Unknown]

NARRATIVE: CASE EVENT DATE: 20190227
